FAERS Safety Report 4763521-8 (Version None)
Quarter: 2005Q3

REPORT INFORMATION
  Report Type: 
  Country: None (occurrence: None)
  Receive Date: 20050908
  Receipt Date: 20050829
  Transmission Date: 20060218
  Serious: Yes (Other)
  Sender: FDA-Public Use
  Company Number: 200512464JP

PATIENT
  Age: 43 Year
  Sex: Male

DRUGS (2)
  1. LASIX [Suspect]
     Indication: RENAL FAILURE
  2. FERROMIA [Concomitant]

REACTIONS (1)
  - DEMENTIA [None]
